FAERS Safety Report 5316648-6 (Version None)
Quarter: 2007Q2

REPORT INFORMATION
  Report Type: 
  Country: None (occurrence: None)
  Receive Date: 20070504
  Receipt Date: 20070427
  Transmission Date: 20071010
  Serious: Yes (Hospitalization)
  Sender: FDA-Public Use
  Company Number: FR-AVENTIS-200711170FR

PATIENT
  Age: 46 Year
  Sex: Female

DRUGS (9)
  1. ALTIM [Suspect]
     Indication: SYNOVITIS
     Dosage: ROUTE: INTRAARTICULAR, INTRASYNOVIAL
     Route: 050
     Dates: start: 20070209, end: 20070209
  2. ACETAMINOPHEN AND TRAMADOL HCL [Suspect]
     Indication: PAIN
     Route: 048
     Dates: end: 20070201
  3. TELFAST                            /01314201/ [Suspect]
     Route: 048
     Dates: end: 20070201
  4. DAFALGAN                           /00020001/ [Suspect]
     Indication: PAIN
     Route: 048
     Dates: end: 20070201
  5. CORTANCYL [Concomitant]
     Indication: RHEUMATOID ARTHRITIS
     Route: 048
  6. SPECIAFOLDINE [Concomitant]
     Indication: RHEUMATOID ARTHRITIS
     Route: 048
  7. OROCAL VITAMIN D [Concomitant]
     Route: 048
  8. NOVATREX                           /00113801/ [Concomitant]
     Indication: RHEUMATOID ARTHRITIS
     Route: 048
     Dates: end: 20070211
  9. NOVATREX                           /00113801/ [Concomitant]
     Route: 048
     Dates: start: 20070222

REACTIONS (6)
  - ACUTE GENERALISED EXANTHEMATOUS PUSTULOSIS [None]
  - POLYARTHRITIS [None]
  - PYREXIA [None]
  - RASH [None]
  - RASH PAPULAR [None]
  - RASH PUSTULAR [None]
